FAERS Safety Report 14715089 (Version 3)
Quarter: 2018Q2

REPORT INFORMATION
  Report Type: Spontaneous
  Country: US (occurrence: US)
  Receive Date: 20180404
  Receipt Date: 20180522
  Transmission Date: 20180711
  Serious: Yes (Death, Hospitalization)
  Sender: FDA-Public Use
  Company Number: US-VIFOR (INTERNATIONAL) INC.-VIT-2018-03238

PATIENT
  Age: 85 Year
  Sex: Male
  Weight: 87.5 kg

DRUGS (17)
  1. ZEMPLAR [Concomitant]
     Active Substance: PARICALCITOL
  2. PROAMATINE [Concomitant]
     Active Substance: MIDODRINE HYDROCHLORIDE
  3. PROAIR HFA [Concomitant]
     Active Substance: ALBUTEROL SULFATE
  4. KEPPRA [Concomitant]
     Active Substance: LEVETIRACETAM
  5. LIQUIGEL [Concomitant]
  6. ERGOCALCIFEROL. [Concomitant]
     Active Substance: ERGOCALCIFEROL
  7. GABAPENTIN. [Concomitant]
     Active Substance: GABAPENTIN
  8. PANTOPRAZOLE [Concomitant]
     Active Substance: PANTOPRAZOLE
  9. ASPIRIN. [Concomitant]
     Active Substance: ASPIRIN
  10. FLOMAX [Concomitant]
     Active Substance: TAMSULOSIN HYDROCHLORIDE
  11. ULORIC [Concomitant]
     Active Substance: FEBUXOSTAT
  12. VELPHORO [Suspect]
     Active Substance: FERRIC OXYHYDROXIDE
     Indication: CHRONIC KIDNEY DISEASE-MINERAL AND BONE DISORDER
     Route: 048
     Dates: end: 20180313
  13. VITAMIN B COMPLEX [Concomitant]
     Active Substance: CYANOCOBALAMIN\DEXPANTHENOL\NIACINAMIDE\PYRIDOXINE HYDROCHLORIDE\RIBOFLAVIN 5^-PHOSPHATE SODIUM\THIAMINE HYDROCHLORIDE\VITAMIN B COMPLEX
  14. FOLIC ACID. [Concomitant]
     Active Substance: FOLIC ACID
  15. OMEPRAZOLE. [Concomitant]
     Active Substance: OMEPRAZOLE
  16. PRAVACHOL [Concomitant]
     Active Substance: PRAVASTATIN SODIUM
  17. ZYRTEC [Concomitant]
     Active Substance: CETIRIZINE HYDROCHLORIDE

REACTIONS (2)
  - Death [Fatal]
  - Off label use [Unknown]

NARRATIVE: CASE EVENT DATE: 20180328
